FAERS Safety Report 24282634 (Version 1)
Quarter: 2024Q3

REPORT INFORMATION
  Report Type: Spontaneous
  Country: US (occurrence: None)
  Receive Date: 20240902
  Receipt Date: 20240902
  Transmission Date: 20241016
  Serious: Yes (unspecified)
  Sender: Public
  Company Number: None

PATIENT
  Age: 57 Year
  Sex: Female
  Weight: 76.5 kg

DRUGS (3)
  1. MINERALS\VITAMINS [Suspect]
     Active Substance: MINERALS\VITAMINS
     Indication: Nutritional supplementation
     Dosage: 1 TABLET DAILY ORAL
     Route: 048
     Dates: start: 20231201, end: 20240830
  2. LIPITOR [Suspect]
     Active Substance: ATORVASTATIN CALCIUM
  3. PROBIOTIC [Concomitant]

REACTIONS (2)
  - Neuropathy peripheral [None]
  - Vitamin B6 increased [None]

NARRATIVE: CASE EVENT DATE: 20240601
